FAERS Safety Report 6377983-6 (Version None)
Quarter: 2009Q3

REPORT INFORMATION
  Report Type: 
  Country: None (occurrence: None)
  Receive Date: 20090925
  Receipt Date: 20090915
  Transmission Date: 20100115
  Serious: Yes (Death)
  Sender: FDA-Public Use
  Company Number: US-TYCO HEALTHCARE/MALLINCKRODT-T200901752

PATIENT
  Age: 9 Year
  Sex: Male
  Weight: 29 kg

DRUGS (4)
  1. METHYLIN [Suspect]
  2. BUPROPION [Concomitant]
  3. AMITRIPTYLINE [Concomitant]
  4. NORTRIPTYLINE HCL [Concomitant]

REACTIONS (1)
  - SUDDEN DEATH [None]
